FAERS Safety Report 6895122-X (Version None)
Quarter: 2010Q3

REPORT INFORMATION
  Report Type: 
  Country: None (occurrence: None)
  Receive Date: 20100708
  Receipt Date: 20090826
  Transmission Date: 20110219
  Serious: Yes (Other)
  Sender: FDA-Public Use
  Company Number: 2009260687

PATIENT
  Age: 40 Year
  Sex: Female
  Weight: 61.2 kg

DRUGS (2)
  1. CHANTIX [Suspect]
     Indication: TOBACCO ABUSE
     Dosage: 0.5 MG, 1 TAB, 1X/DAY, ORAL 1 MG, 1 TAB, 2X/DAY, ORAL
     Route: 048
     Dates: end: 20090307
  2. CHANTIX [Suspect]
     Indication: TOBACCO ABUSE
     Dosage: 0.5 MG, 1 TAB, 1X/DAY, ORAL 1 MG, 1 TAB, 2X/DAY, ORAL
     Route: 048
     Dates: start: 20090301

REACTIONS (3)
  - ABNORMAL BEHAVIOUR [None]
  - DEPRESSION [None]
  - MOOD SWINGS [None]
